FAERS Safety Report 13333928 (Version 2)
Quarter: 2018Q3

REPORT INFORMATION
  Report Type: Spontaneous
  Country: IN (occurrence: IN)
  Receive Date: 20170314
  Receipt Date: 20180926
  Transmission Date: 20181010
  Serious: Yes (Other)
  Sender: FDA-Public Use
  Company Number: IN-009507513-1703IND006146

PATIENT
  Age: 35 Year
  Sex: Male

DRUGS (6)
  1. PEGINTERFERON ALFA?2B [Suspect]
     Active Substance: PEGINTERFERON ALFA-2B
     Indication: CHRONIC HEPATITIS C
  2. RIBAVIRIN. [Suspect]
     Active Substance: RIBAVIRIN
     Indication: HEPATIC CIRRHOSIS
     Dosage: 1200 MG/DAY
     Route: 048
  3. RIBAVIRIN. [Suspect]
     Active Substance: RIBAVIRIN
     Indication: CIRRHOSIS ALCOHOLIC
  4. PEGINTERFERON ALFA?2B [Suspect]
     Active Substance: PEGINTERFERON ALFA-2B
     Indication: HEPATIC CIRRHOSIS
     Dosage: 180 MICROGRAM, QW
  5. PEGINTERFERON ALFA?2B [Suspect]
     Active Substance: PEGINTERFERON ALFA-2B
     Indication: CIRRHOSIS ALCOHOLIC
  6. RIBAVIRIN. [Suspect]
     Active Substance: RIBAVIRIN
     Indication: CHRONIC HEPATITIS C

REACTIONS (4)
  - Jaundice [Unknown]
  - Thrombocytopenia [Unknown]
  - Anaemia [Unknown]
  - Ascites [Unknown]
